FAERS Safety Report 5944241-0 (Version None)
Quarter: 2008Q4

REPORT INFORMATION
  Report Type: 
  Country: None (occurrence: None)
  Receive Date: 20081104
  Receipt Date: 20081020
  Transmission Date: 20090506
  Serious: Yes (Other)
  Sender: FDA-Public Use
  Company Number: 2008002121

PATIENT
  Sex: Male

DRUGS (11)
  1. TARCEVA [Suspect]
     Indication: LUNG NEOPLASM MALIGNANT
     Dosage: 150 MG, QD, ORAL
     Route: 048
     Dates: start: 20080723
  2. ALBUTEROL [Concomitant]
  3. METOPROLOL TARTRATE [Concomitant]
  4. FOLIC ACID [Concomitant]
  5. FLOMAX (MORNIFLUMATE) [Concomitant]
  6. AVODART [Concomitant]
  7. OMEPRAZOLE [Concomitant]
  8. DIOVAN [Concomitant]
  9. PLAQUENIL [Concomitant]
  10. METHOTREXATE [Concomitant]
  11. FOSAMAX [Concomitant]

REACTIONS (9)
  - DIARRHOEA [None]
  - ERYTHEMA [None]
  - FATIGUE [None]
  - FUNGAL INFECTION [None]
  - MALIGNANT MELANOMA [None]
  - NAIL BED INFLAMMATION [None]
  - RASH [None]
  - STAPHYLOCOCCAL SKIN INFECTION [None]
  - SWELLING [None]
